FAERS Safety Report 20717637 (Version 5)
Quarter: 2023Q1

REPORT INFORMATION
  Report Type: Spontaneous
  Country: JP (occurrence: JP)
  Receive Date: 20220417
  Receipt Date: 20230328
  Transmission Date: 20230417
  Serious: Yes (Hospitalization, Other)
  Sender: FDA-Public Use
  Company Number: JP-ONO-2022JP009257

PATIENT
  Age: 63 Year
  Sex: Male

DRUGS (2)
  1. YERVOY [Suspect]
     Active Substance: IPILIMUMAB
     Indication: Metastatic renal cell carcinoma
     Dosage: 1 MG/KG, Q3W
     Route: 041
     Dates: start: 20211104, end: 20211205
  2. OPDIVO [Suspect]
     Active Substance: NIVOLUMAB
     Indication: Metastatic renal cell carcinoma
     Route: 041
     Dates: start: 20211104, end: 20211205

REACTIONS (8)
  - Immune-mediated hepatic disorder [Recovered/Resolved]
  - Pancreatitis [Recovered/Resolved]
  - Hypothyroidism [Not Recovered/Not Resolved]
  - Immune-mediated renal disorder [Recovered/Resolved]
  - Pyrexia [Unknown]
  - Decreased appetite [Unknown]
  - Decreased activity [Unknown]
  - Anuria [Unknown]

NARRATIVE: CASE EVENT DATE: 20211205
